FAERS Safety Report 9672330 (Version 2)
Quarter: 2014Q1

REPORT INFORMATION
  Report Type: Not Available
  Country: FI (occurrence: FI)
  Receive Date: 20131106
  Receipt Date: 20140207
  Transmission Date: 20141002
  Serious: Yes (Death, Hospitalization)
  Sender: FDA-Public Use
  Company Number: FI-IAC JAPAN XML-GBR-2013-0016178

PATIENT
  Age: 85 Year
  Sex: Female

DRUGS (25)
  1. NORSPAN 10 MCG/HR DEPOTLAASTARI [Suspect]
     Indication: PRODUCT USED FOR UNKNOWN INDICATION
     Dosage: HOT
     Route: 062
     Dates: start: 20130604, end: 20130930
  2. SOMAC [Concomitant]
     Dosage: 20 MG, AM
     Dates: start: 20130506, end: 20130903
  3. LITALGIN                           /00320201/ [Concomitant]
     Dosage: UNK
     Dates: start: 20130816, end: 20130930
  4. VI-SIBLIN                          /00222601/ [Concomitant]
     Dosage: UNK
     Dates: start: 20130905, end: 20130930
  5. MYCOSTATIN MED GRANEODIN [Concomitant]
     Dosage: 1 ML, QID
     Dates: start: 20130911
  6. METFORMIN [Concomitant]
     Dosage: UNK
     Dates: start: 20130528, end: 20130930
  7. CALCICHEW-D3 FORTE [Concomitant]
     Dosage: UNK
     Dates: start: 20130821
  8. KALEORID [Concomitant]
     Dosage: UNK
     Dates: start: 20130506
  9. PRADAXA [Concomitant]
     Dosage: 100 MG, UNK
     Dates: start: 20130704, end: 20130930
  10. DINIT [Concomitant]
     Dosage: UNK
     Dates: start: 20070306
  11. ISANGINA [Concomitant]
     Dosage: UNK
     Dates: start: 20070403
  12. FURESIS [Concomitant]
     Dosage: 20 MG, UNK
     Dates: start: 20070724, end: 20130930
  13. ORLOC [Concomitant]
     Dosage: UNK
     Dates: start: 20130528
  14. ENALAPRIL RATIOPHARM [Concomitant]
     Dosage: UNK
     Dates: start: 20110803, end: 20130930
  15. PRAVASTATIN RATIOPHARM [Concomitant]
     Dosage: UNK
     Dates: start: 20110728, end: 20130930
  16. APOBASE [Concomitant]
  17. PREDNISOLON                        /00016201/ [Concomitant]
     Dosage: 5 MG, UNK
     Dates: start: 20130506
  18. ALLOPURINOL [Concomitant]
     Dosage: UNK
     Dates: start: 20111102, end: 20130930
  19. PARA-TABS [Concomitant]
     Dosage: 500 MG, UNK
     Dates: start: 20070814
  20. ZOPINOX [Concomitant]
     Dosage: 7.5 MG, UNK
     Dates: start: 20130101, end: 20130930
  21. NASOFAN [Concomitant]
     Dosage: 50 UNK, UNK
     Dates: start: 20130101, end: 20130930
  22. BRICANYL [Concomitant]
     Dosage: UNK
     Dates: start: 20070814, end: 20130930
  23. IPRAMOL [Concomitant]
     Dosage: UNK
     Dates: start: 20130910, end: 20130930
  24. FLIXOTIDE NEBUL [Concomitant]
     Dosage: UNK
     Dates: start: 20070309, end: 20130930
  25. OFTAGEL [Concomitant]
     Dosage: UNK
     Dates: start: 20130219, end: 20130909

REACTIONS (7)
  - Bone marrow failure [Fatal]
  - General physical health deterioration [Unknown]
  - Neutropenic infection [Unknown]
  - Tongue haemorrhage [Unknown]
  - Haematoma [Unknown]
  - Oral pain [Unknown]
  - Fatigue [Unknown]
